FAERS Safety Report 5130736-9 (Version None)
Quarter: 2006Q4

REPORT INFORMATION
  Report Type: 
  Country: None (occurrence: None)
  Receive Date: 20061018
  Receipt Date: 20061018
  Transmission Date: 20070319
  Serious: Yes (Life-Threatening, Hospitalization)
  Sender: FDA-Public Use
  Company Number: None

PATIENT
  Age: 74 Year
  Sex: Female
  Weight: 69 kg

DRUGS (3)
  1. CEFZIL [Suspect]
     Indication: ARTHROPOD BITE
     Dosage: ?
     Route: 065
     Dates: start: 20060813
  2. CEFZIL [Suspect]
     Indication: CELLULITIS
     Dosage: ?
     Route: 065
     Dates: start: 20060813
  3. MULTI-VITAMIN [Concomitant]

REACTIONS (8)
  - ATRIOVENTRICULAR BLOCK FIRST DEGREE [None]
  - BLOOD PRESSURE DECREASED [None]
  - DEPRESSED LEVEL OF CONSCIOUSNESS [None]
  - ELECTROCARDIOGRAM T WAVE ABNORMAL [None]
  - LOSS OF CONSCIOUSNESS [None]
  - NAUSEA [None]
  - SYNCOPE VASOVAGAL [None]
  - VOMITING [None]
